FAERS Safety Report 8302402-X (Version None)
Quarter: 2012Q2

REPORT INFORMATION
  Report Type: 
  Country: None (occurrence: None)
  Receive Date: 20120420
  Receipt Date: 20120410
  Transmission Date: 20120825
  Serious: Yes (Death)
  Sender: FDA-Public Use
  Company Number: US-BAXTER-2012BAX002788

PATIENT
  Sex: Female
  Weight: 197 kg

DRUGS (1)
  1. SODIUM CHLORIDE INJ [Suspect]
     Indication: FLUID REPLACEMENT
     Route: 042
     Dates: start: 20120309, end: 20120309

REACTIONS (1)
  - DEATH [None]
